FAERS Safety Report 16284887 (Version 1)
Quarter: 2019Q2

REPORT INFORMATION
  Report Type: Spontaneous
  Country: IN (occurrence: IN)
  Receive Date: 20190508
  Receipt Date: 20190508
  Transmission Date: 20190711
  Serious: Yes (Hospitalization, Other)
  Sender: FDA-Public Use
  Company Number: IN-SA-2019SA123957

PATIENT
  Age: 12 Year
  Sex: Male

DRUGS (14)
  1. FLUDARABINE PHOSPHATE. [Suspect]
     Active Substance: FLUDARABINE PHOSPHATE
     Indication: BONE MARROW CONDITIONING REGIMEN
     Dosage: INJ FLUDARABINE 40 MG/M2/DOSE ON DAYS ?5 TO ?2
  2. CYCLOPHOSPHAMIDE. [Suspect]
     Active Substance: CYCLOPHOSPHAMIDE
     Indication: BONE MARROW CONDITIONING REGIMEN
     Dosage: CYCLOPHOSPHAMIDE (CY) 14.5 MG/KG ON DAYS ?3 TO ?2,
  3. PREDNISOLONE. [Concomitant]
     Active Substance: PREDNISOLONE
     Indication: HAEMOPHAGOCYTIC LYMPHOHISTIOCYTOSIS
  4. MYCOPHENOLATE MOFETIL. [Suspect]
     Active Substance: MYCOPHENOLATE MOFETIL
     Indication: PROPHYLAXIS AGAINST GRAFT VERSUS HOST DISEASE
     Dosage: FROM DAY +5
  5. ANTI-THYMOCYTE GLOBULIN (RABBIT) NOS [Suspect]
     Active Substance: LAPINE T-LYMPHOCYTE IMMUNE GLOBULIN
     Indication: BONE MARROW CONDITIONING REGIMEN
     Dosage: RABBIT ANTITHYMOGLOBULIN 2.5MG/KG/DOSE ON DAY ?11 TO ?9
  6. ASPARAGINASE [Concomitant]
     Active Substance: ASPARAGINASE
     Indication: HAEMOPHAGOCYTIC LYMPHOHISTIOCYTOSIS
  7. CYCLOPHOSPHAMIDE. [Suspect]
     Active Substance: CYCLOPHOSPHAMIDE
     Indication: PROPHYLAXIS AGAINST GRAFT VERSUS HOST DISEASE
     Dosage: POST-TRANSPLANT CYCLOPHOSPHAMIDE, 50 MG/KG/DOSE ON DAY +3 AND +4
  8. CYCLOSPORINE. [Suspect]
     Active Substance: CYCLOSPORINE
     Indication: HAEMOPHAGOCYTIC LYMPHOHISTIOCYTOSIS
  9. DEXAMETHASONE SALT NOT SPECIFIED [Suspect]
     Active Substance: DEXAMETHASONE
     Indication: HAEMOPHAGOCYTIC LYMPHOHISTIOCYTOSIS
  10. DOXORUBICIN [Concomitant]
     Active Substance: DOXORUBICIN
     Indication: HAEMOPHAGOCYTIC LYMPHOHISTIOCYTOSIS
  11. TACROLIMUS. [Suspect]
     Active Substance: TACROLIMUS
     Indication: PROPHYLAXIS AGAINST GRAFT VERSUS HOST DISEASE
     Dosage: FROM DAY +5
  12. RITUXIMAB. [Concomitant]
     Active Substance: RITUXIMAB
     Indication: BONE MARROW CONDITIONING REGIMEN
     Dosage: 100MG/M2 ON DAY ?12
  13. ETOPOSIDE. [Concomitant]
     Active Substance: ETOPOSIDE
     Indication: HAEMOPHAGOCYTIC LYMPHOHISTIOCYTOSIS
  14. METHOTREXATE. [Concomitant]
     Active Substance: METHOTREXATE
     Indication: HAEMOPHAGOCYTIC LYMPHOHISTIOCYTOSIS
     Dosage: UNK, QW
     Route: 037

REACTIONS (6)
  - Cystitis haemorrhagic [Unknown]
  - Escherichia infection [Recovered/Resolved]
  - Multiple-drug resistance [Recovered/Resolved]
  - Pyrexia [Recovered/Resolved]
  - Therapeutic response decreased [Unknown]
  - Off label use [Unknown]
